FAERS Safety Report 19853982 (Version 1)
Quarter: 2021Q3

REPORT INFORMATION
  Report Type: Spontaneous
  Country: FR (occurrence: FR)
  Receive Date: 20210920
  Receipt Date: 20210920
  Transmission Date: 20211014
  Serious: Yes (Other)
  Sender: FDA-Public Use
  Company Number: FR-AUROBINDO-AUR-APL-2021-039092

PATIENT
  Age: 58 Year
  Sex: Male

DRUGS (5)
  1. PREDNISOLONE ORODISPERSIBLE TABLET [Suspect]
     Active Substance: PREDNISOLONE
     Indication: EAR INFECTION
     Dosage: 80 MILLIGRAM
     Route: 065
  2. NAPHAZOLINE [Suspect]
     Active Substance: NAPHAZOLINE\NAPHAZOLINE HYDROCHLORIDE
     Indication: EAR INFECTION
     Dosage: UNK
     Route: 045
  3. PREDNISOLONE ORODISPERSIBLE TABLET [Suspect]
     Active Substance: PREDNISOLONE
     Dosage: 0.02 MILLIGRAM, FOUR TIMES/DAY
     Route: 065
  4. OFLOXACIN. [Suspect]
     Active Substance: OFLOXACIN
     Indication: OTORRHOEA
     Dosage: 1.5 MILLIGRAM (MORNING AND EVENING)
     Route: 065
  5. AMOXICILLIN+CLAVULANIC ACID [Suspect]
     Active Substance: AMOXICILLIN\CLAVULANIC ACID
     Indication: EAR INFECTION
     Dosage: UNK
     Route: 065

REACTIONS (3)
  - Tendon rupture [Unknown]
  - Otorrhoea [Unknown]
  - Tendon pain [Unknown]
